FAERS Safety Report 9051343 (Version 4)
Quarter: 2015Q2

REPORT INFORMATION
  Report Type: Spontaneous
  Country: US (occurrence: US)
  Receive Date: 20130206
  Receipt Date: 20150520
  Transmission Date: 20150821
  Serious: No
  Sender: FDA-Public Use
  Company Number: US-009507513-1302USA001739

PATIENT
  Sex: Male

DRUGS (1)
  1. PROPECIA [Suspect]
     Active Substance: FINASTERIDE
     Indication: ALOPECIA
     Dosage: 1 MG, QD
     Route: 048
     Dates: start: 20090417

REACTIONS (19)
  - Heart rate increased [Unknown]
  - Fasciitis [Unknown]
  - Urinary tract infection [Unknown]
  - Bradycardia [Unknown]
  - Genital lesion [Unknown]
  - Semen analysis abnormal [Unknown]
  - Sexual dysfunction [Not Recovered/Not Resolved]
  - Dyspnoea [Unknown]
  - Spermatozoa morphology abnormal [Unknown]
  - Heart rate irregular [Unknown]
  - Atrial fibrillation [Unknown]
  - Concussion [Unknown]
  - Spermatozoa progressive motility decreased [Unknown]
  - Semen volume decreased [Unknown]
  - Polyuria [Not Recovered/Not Resolved]
  - Sperm concentration decreased [Unknown]
  - Erectile dysfunction [Not Recovered/Not Resolved]
  - Chest pain [Unknown]
  - Neck pain [Unknown]

NARRATIVE: CASE EVENT DATE: 2009
